FAERS Safety Report 9788916 (Version 1)
Quarter: 2013Q4

REPORT INFORMATION
  Report Type: Spontaneous
  Country: JP (occurrence: JP)
  Receive Date: 20131230
  Receipt Date: 20131230
  Transmission Date: 20140711
  Serious: Yes (Hospitalization)
  Sender: FDA-Public Use
  Company Number: JP-GLAXOSMITHKLINE-B0955972A

PATIENT
  Age: 5 Decade
  Sex: Male

DRUGS (3)
  1. LAMICTAL [Suspect]
     Indication: BIPOLAR DISORDER
     Dosage: 25MG TWICE PER DAY
     Route: 048
     Dates: start: 20131029, end: 20131105
  2. LITHIUM CARBONATE [Concomitant]
     Route: 048
  3. RIVOTRIL [Concomitant]
     Route: 048

REACTIONS (1)
  - Skin disorder [Recovered/Resolved]
